FAERS Safety Report 5748628-0 (Version None)
Quarter: 2008Q2

REPORT INFORMATION
  Report Type: 
  Country: None (occurrence: None)
  Receive Date: 20080521
  Receipt Date: 20080513
  Transmission Date: 20081010
  Serious: Yes (Death)
  Sender: FDA-Public Use
  Company Number: 2008US001333

PATIENT
  Age: 53 Year
  Sex: Male

DRUGS (14)
  1. PROGRAF [Suspect]
     Indication: PROPHYLAXIS
     Dosage: 5 MG, BID, ORAL
     Route: 048
     Dates: start: 20060527, end: 20060608
  2. MYCOPHENOLATE MOFETIL [Suspect]
     Indication: PROPHYLAXIS
     Dosage: 1000 MG, BID, ORAL
     Route: 048
     Dates: start: 20051118, end: 20060606
  3. PREDNISONE TAB [Suspect]
     Indication: PROPHYLAXIS
     Dosage: 30 MG, UNK, ORAL
     Route: 048
     Dates: start: 20051123, end: 20060608
  4. SEPTRA [Concomitant]
  5. PROTONIX [Concomitant]
  6. COLACE (DOCUSATE SODIUM) [Concomitant]
  7. METOPROLOL TARTRATE [Concomitant]
  8. GLIPIZIDE [Concomitant]
  9. ASPIRIN [Concomitant]
  10. LANTUS [Concomitant]
  11. COREG [Concomitant]
  12. NORVASC [Concomitant]
  13. SODIUM BICARBONATE IN PLASTIC CONTAINER [Concomitant]
  14. INSULIN (INSULIN) [Concomitant]

REACTIONS (3)
  - CARDIO-RESPIRATORY ARREST [None]
  - VENTRICULAR FIBRILLATION [None]
  - VENTRICULAR TACHYCARDIA [None]
